FAERS Safety Report 22606955 (Version 1)
Quarter: 2023Q2

REPORT INFORMATION
  Report Type: Spontaneous
  Country: NL (occurrence: NL)
  Receive Date: 20230615
  Receipt Date: 20230615
  Transmission Date: 20230722
  Serious: Yes (Other)
  Sender: FDA-Public Use
  Company Number: None

PATIENT
  Sex: Male
  Weight: 80 kg

DRUGS (6)
  1. LORAZEPAM [Suspect]
     Active Substance: LORAZEPAM
     Indication: Restlessness
     Dosage: 1 MG
     Route: 065
     Dates: start: 20201215
  2. MIDAZOLAM [Suspect]
     Active Substance: MIDAZOLAM
     Indication: Sleep disorder
     Dosage: EVERY EVENING BEFORE SLEEPING MAX 2 X PER NIGHT,  INJVLST 1MG/ML
     Route: 065
     Dates: start: 20220303
  3. CITALOPRAM [Suspect]
     Active Substance: CITALOPRAM HYDROBROMIDE
     Indication: Restlessness
     Dosage: 1X PER DAY 08.00 UUR, TABLET ENCLOSED 20MG / BRAND NAME NOT SPECIFIED
     Route: 065
     Dates: start: 20211110
  4. QUETIAPINE [Suspect]
     Active Substance: QUETIAPINE
     Indication: Restlessness
     Dosage: 1X 25MG, TABLET FOR 100MG / BRAND NAME NOT SPECIFIED
     Route: 065
     Dates: start: 20220330
  5. QUETIAPINE [Suspect]
     Active Substance: QUETIAPINE
     Dosage: 2X PER DAY 100 MG 08.00 PLUS 17.00 PLUS 1X 25 MG. 17.00
     Route: 065
     Dates: start: 20220330
  6. ACETAMINOPHEN\ASPIRIN [Suspect]
     Active Substance: ACETAMINOPHEN\ASPIRIN
     Indication: Headache
     Dosage: MAXIMUM 4X PER DAY 1000 MG, ACETYLSALICYLIC ACID/PARACETAMOL/COF TAB 250/250/50MG
     Route: 065
     Dates: start: 20211123

REACTIONS (2)
  - Vomiting [Not Recovered/Not Resolved]
  - Fall [Not Recovered/Not Resolved]
